FAERS Safety Report 4303786-X (Version None)
Quarter: 2004Q1

REPORT INFORMATION
  Report Type: 
  Country: None (occurrence: None)
  Receive Date: 20040225
  Receipt Date: 20040217
  Transmission Date: 20041129
  Serious: Yes (Other)
  Sender: FDA-Public Use
  Company Number: PHEH2004US02049

PATIENT
  Age: 52 Year
  Sex: Male

DRUGS (1)
  1. AREDIA [Suspect]
     Indication: MULTIPLE MYELOMA
     Dosage: 90 MG, QMO
     Dates: start: 19990101, end: 20040101

REACTIONS (7)
  - BIOPSY [None]
  - BONE LESION [None]
  - HYPERBARIC OXYGEN THERAPY [None]
  - IMPAIRED HEALING [None]
  - PAIN IN JAW [None]
  - SWELLING [None]
  - THERAPY NON-RESPONDER [None]
